FAERS Safety Report 5311423-0 (Version None)
Quarter: 2007Q2

REPORT INFORMATION
  Report Type: 
  Country: None (occurrence: None)
  Receive Date: 20070430
  Receipt Date: 20070423
  Transmission Date: 20071010
  Serious: Yes (Hospitalization, Other)
  Sender: FDA-Public Use
  Company Number: DEWYE126312JAN07

PATIENT
  Sex: Female
  Weight: 40 kg

DRUGS (2)
  1. RAPAMUNE [Suspect]
     Indication: PROPHYLAXIS AGAINST TRANSPLANT REJECTION
     Dosage: 2 MG
     Dates: start: 20040101, end: 20040101
  2. RAPAMUNE [Suspect]
     Dosage: 1 MG
     Dates: start: 20040101, end: 20070101

REACTIONS (4)
  - AUTOIMMUNE DISORDER [None]
  - COORDINATION ABNORMAL [None]
  - MUSCLE SPASTICITY [None]
  - POLYNEUROPATHY [None]
